FAERS Safety Report 9868795 (Version 1)
Quarter: 2014Q1

REPORT INFORMATION
  Report Type: Spontaneous
  Country: US (occurrence: US)
  Receive Date: 20140204
  Receipt Date: 20140204
  Transmission Date: 20141002
  Serious: No
  Sender: FDA-Public Use
  Company Number: US-GILEAD-2014-0093626

PATIENT
  Age: 75 Year
  Sex: Male

DRUGS (2)
  1. RANEXA [Suspect]
     Indication: PRODUCT USED FOR UNKNOWN INDICATION
     Dosage: 1000 MG, BID
     Route: 065
     Dates: start: 20140130
  2. RANEXA [Suspect]
     Dosage: 500 MG, BID
     Route: 065
     Dates: start: 201401, end: 20140130

REACTIONS (4)
  - Malaise [Unknown]
  - Orthostatic hypotension [Unknown]
  - Confusional state [Unknown]
  - Dizziness [Unknown]
